FAERS Safety Report 19141829 (Version 1)
Quarter: 2021Q2

REPORT INFORMATION
  Report Type: Spontaneous
  Country: BG (occurrence: BG)
  Receive Date: 20210415
  Receipt Date: 20210415
  Transmission Date: 20210717
  Serious: Yes (Other)
  Sender: FDA-Public Use
  Company Number: BG-TAKEDA-2021TUS022942

PATIENT
  Age: 53 Year
  Sex: Male

DRUGS (1)
  1. ENTYVIO [Suspect]
     Active Substance: VEDOLIZUMAB
     Indication: CROHN^S DISEASE
     Dosage: UNK
     Route: 042
     Dates: start: 202004

REACTIONS (1)
  - Gastric cancer [Not Recovered/Not Resolved]

NARRATIVE: CASE EVENT DATE: 2021
